FAERS Safety Report 4873009-1 (Version None)
Quarter: 2006Q1

REPORT INFORMATION
  Report Type: 
  Country: None (occurrence: None)
  Receive Date: 20060105
  Receipt Date: 20051229
  Transmission Date: 20060701
  Serious: Yes (Hospitalization)
  Sender: FDA-Public Use
  Company Number: DE-JNJFOC-20051103872

PATIENT
  Age: 77 Year
  Sex: Male

DRUGS (9)
  1. REMINYL [Interacting]
     Route: 048
  2. DOMINAL [Suspect]
     Indication: DRUG USE FOR UNKNOWN INDICATION
     Route: 048
  3. LORAZEPAM [Concomitant]
     Route: 048
  4. LORAZEPAM [Concomitant]
     Route: 048
  5. LORAZEPAM [Concomitant]
     Route: 048
  6. GLUCOBAY [Concomitant]
     Route: 048
  7. METOPROLOL [Concomitant]
     Route: 048
  8. CAPTOGAMMA [Concomitant]
     Route: 048
  9. ASPIRIN [Concomitant]
     Route: 048

REACTIONS (2)
  - DRUG INTERACTION [None]
  - PLEUROTHOTONUS [None]
